FAERS Safety Report 12418106 (Version 1)
Quarter: 2016Q2

REPORT INFORMATION
  Report Type: Spontaneous
  Country: GB (occurrence: GB)
  Receive Date: 20160531
  Receipt Date: 20160531
  Transmission Date: 20160815
  Serious: Yes (Other)
  Sender: FDA-Public Use
  Company Number: GB-ALLERGAN-1647393

PATIENT
  Age: 42 Year
  Sex: Female

DRUGS (2)
  1. ESMYA [Suspect]
     Active Substance: ULIPRISTAL ACETATE
     Indication: UTERINE LEIOMYOMA
     Dosage: 5 MG, QD
     Route: 048
     Dates: start: 20140805, end: 201411
  2. ESMYA [Suspect]
     Active Substance: ULIPRISTAL ACETATE
     Dosage: 5 MG, QD
     Route: 048
     Dates: start: 20140328, end: 201406

REACTIONS (8)
  - Uterine leiomyoma [Recovered/Resolved]
  - Abdominal discomfort [Unknown]
  - Blood pressure increased [Unknown]
  - Vaginal haemorrhage [Recovered/Resolved]
  - Uterine haemorrhage [Recovered/Resolved]
  - Uterine pain [Recovered/Resolved]
  - Amenorrhoea [Recovered/Resolved]
  - Uterine leiomyoma [Unknown]

NARRATIVE: CASE EVENT DATE: 201409
